FAERS Safety Report 19483067 (Version 1)
Quarter: 2021Q3

REPORT INFORMATION
  Report Type: Spontaneous
  Country: US (occurrence: US)
  Receive Date: 20210701
  Receipt Date: 20210701
  Transmission Date: 20211014
  Serious: Yes (Other)
  Sender: FDA-Public Use
  Company Number: US-ROCHE-2860043

PATIENT
  Age: 59 Year
  Sex: Female
  Weight: 74.46 kg

DRUGS (4)
  1. COPAXONE [Concomitant]
     Active Substance: GLATIRAMER ACETATE
  2. OCREVUS [Suspect]
     Active Substance: OCRELIZUMAB
     Indication: RELAPSING-REMITTING MULTIPLE SCLEROSIS
     Dosage: YES
     Route: 041
     Dates: start: 20201221
  3. AUBAGIO [Concomitant]
     Active Substance: TERIFLUNOMIDE
  4. BENICAR [Concomitant]
     Active Substance: OLMESARTAN MEDOXOMIL
     Route: 048
     Dates: start: 202012

REACTIONS (3)
  - Seizure [Not Recovered/Not Resolved]
  - Keratosis pilaris [Not Recovered/Not Resolved]
  - Seborrhoeic keratosis [Not Recovered/Not Resolved]

NARRATIVE: CASE EVENT DATE: 202102
